FAERS Safety Report 8661827 (Version 2)
Quarter: 2012Q4

REPORT INFORMATION
  Report Type: 
  Country: US (occurrence: US)
  Receive Date: 20120712
  Receipt Date: 20121101
  Transmission Date: 20130627
  Serious: Yes (Hospitalization, Other)
  Sender: FDA-Public Use
  Company Number: US-ASTRAZENECA-2012SE45705

PATIENT
  Age: 79 Year
  Sex: Female

DRUGS (4)
  1. TOPROL XL [Suspect]
     Route: 048
  2. WATER PILL [Concomitant]
  3. BLOOD PRESSURE MEDICATION [Concomitant]
  4. DIABETES MEDICATION [Concomitant]
     Indication: DIABETES MELLITUS

REACTIONS (7)
  - Deep vein thrombosis [Unknown]
  - Thrombosis [Unknown]
  - Anaemia [Unknown]
  - Red blood cell count decreased [Unknown]
  - Weight decreased [Unknown]
  - Oedema peripheral [Unknown]
  - Hypotension [Unknown]
